FAERS Safety Report 23919669 (Version 1)
Quarter: 2024Q2

REPORT INFORMATION
  Report Type: Spontaneous
  Country: US (occurrence: US)
  Receive Date: 20240530
  Receipt Date: 20240530
  Transmission Date: 20240716
  Serious: No
  Sender: FDA-Public Use
  Company Number: US-MELINTA THERAPEUTICS, LLC-US-MLNT-24-00183

PATIENT

DRUGS (1)
  1. REZZAYO [Suspect]
     Active Substance: REZAFUNGIN
     Indication: Product used for unknown indication
     Dosage: 400 MILLIGRAM
     Route: 042
     Dates: start: 20240325, end: 20240325

REACTIONS (5)
  - Hypoaesthesia [Unknown]
  - Dyspnoea [Unknown]
  - Anxiety [Unknown]
  - Chest pain [Unknown]
  - Dysphagia [Unknown]

NARRATIVE: CASE EVENT DATE: 20240325
